FAERS Safety Report 16141474 (Version 3)
Quarter: 2019Q2

REPORT INFORMATION
  Report Type: Spontaneous
  Country: JP (occurrence: JP)
  Receive Date: 20190401
  Receipt Date: 20190429
  Transmission Date: 20190711
  Serious: Yes (Life-Threatening, Hospitalization, Other)
  Sender: FDA-Public Use
  Company Number: JP-PFIZER INC-2019136817

PATIENT
  Age: 66 Year
  Sex: Female

DRUGS (15)
  1. DEXAMETHASONE. [Suspect]
     Active Substance: DEXAMETHASONE
     Indication: PLASMA CELL MYELOMA
     Dosage: 40 MG, CYCLIC (ON DAYS 1, 8, 15, AND 22 OF EACH 28-DAY CYCLE)
  2. POMALIDOMIDE [Suspect]
     Active Substance: POMALIDOMIDE
     Indication: PLASMA CELL MYELOMA
     Dosage: 4 MG, CYCLIC (4MG ON DAYS 1-21)
  3. PREDNISOLONE. [Suspect]
     Active Substance: PREDNISOLONE
     Indication: PLASMA CELL MYELOMA
     Dosage: 60 MG/M2, CYCLIC (60 MG/M2 ON DAYS 1-4 OF EACH 21-DAY CYCLE)
  4. POMALIDOMIDE [Suspect]
     Active Substance: POMALIDOMIDE
     Dosage: 2 MG, UNK
  5. CYCLOPHOSPHAMIDE. [Suspect]
     Active Substance: CYCLOPHOSPHAMIDE
     Indication: PLASMA CELL MYELOMA
     Dosage: 400 MG/BODY ON DAYS 1, 8, 15, AND 22 OF EACH 28-DAY CYCLE
  6. CYCLOPHOSPHAMIDE. [Suspect]
     Active Substance: CYCLOPHOSPHAMIDE
     Dosage: 100 MG/BODY ON DAYS 1-4 OF EACH 21-DAY CYCLE
  7. DEXAMETHASONE. [Suspect]
     Active Substance: DEXAMETHASONE
     Dosage: UNK
  8. BORTEZOMIB. [Suspect]
     Active Substance: BORTEZOMIB
     Indication: PLASMA CELL MYELOMA
     Dosage: 1.3 MG/M2, CYCLIC (CBD THERAPY - ON DAYS 1, 8, 15, AND 22 OF EACH 28-DAY CYCLE)
  9. MELPHALAN. [Suspect]
     Active Substance: MELPHALAN
     Indication: PLASMA CELL MYELOMA
     Dosage: 200 MG/M2 (HIGH-DOSE), UNK
  10. CYCLOPHOSPHAMIDE. [Suspect]
     Active Substance: CYCLOPHOSPHAMIDE
     Dosage: HIGH-DOSE
  11. DOXORUBICIN HCL [Suspect]
     Active Substance: DOXORUBICIN HYDROCHLORIDE
     Indication: PLASMA CELL MYELOMA
     Dosage: 25 MG/M2, CYCLIC (ON DAY 1 OF EACH 21-DAY CYCLE)
  12. DEXAMETHASONE. [Suspect]
     Active Substance: DEXAMETHASONE
     Dosage: 20 MG, CYCLIC (20 MG ON DAYS 1, 8,15, AND 22)
  13. VINCRISTINE [Suspect]
     Active Substance: VINCRISTINE
     Indication: PLASMA CELL MYELOMA
     Dosage: 1 MG/BODY (ON DAY 1 OF EACH 21-DAY CYCLE)
  14. DEXAMETHASONE. [Suspect]
     Active Substance: DEXAMETHASONE
     Dosage: 40 MG, CYCLIC (ON DAYS 1, 8, 15, AND 22 OF EACH 28-DAY CYCLE)
  15. LENALIDOMIDE [Suspect]
     Active Substance: LENALIDOMIDE
     Indication: PLASMA CELL MYELOMA
     Dosage: 4 MG, CYCLIC (ON DAYS 1-21OF EACH 28-DAY CYCLE)

REACTIONS (9)
  - Urethritis [Recovered/Resolved]
  - Hepatic function abnormal [Recovered/Resolved]
  - Pathogen resistance [Recovered/Resolved]
  - Adenovirus infection [Recovered/Resolved]
  - Adenoviral haemorrhagic cystitis [Recovered/Resolved]
  - Escherichia infection [Recovered/Resolved]
  - Peritonitis viral [Recovered/Resolved]
  - Urinary tract infection [Recovered/Resolved]
  - Cytomegalovirus infection [Unknown]
